FAERS Safety Report 24947996 (Version 1)
Quarter: 2025Q1

REPORT INFORMATION
  Report Type: Spontaneous
  Country: GB (occurrence: GB)
  Receive Date: 20250210
  Receipt Date: 20250210
  Transmission Date: 20250408
  Serious: No
  Sender: ALKEM
  Company Number: None

PATIENT
  Age: 62 Year
  Sex: Female
  Weight: 96.2 kg

DRUGS (2)
  1. EZETIMIBE [Suspect]
     Active Substance: EZETIMIBE
     Indication: Adverse drug reaction
     Dosage: 1 DOSAGE FORM, QD (TABLET)
     Route: 065
     Dates: start: 20231005, end: 20240410
  2. ROSUVASTATIN [Concomitant]
     Active Substance: ROSUVASTATIN
     Indication: Acute myocardial infarction
     Dosage: 1 DOSAGE FORM, QD
     Route: 065
     Dates: start: 20240119

REACTIONS (1)
  - Arthralgia [Recovered/Resolved]
